FAERS Safety Report 5823960-0 (Version None)
Quarter: 2008Q3

REPORT INFORMATION
  Report Type: 
  Country: None (occurrence: None)
  Receive Date: 20080724
  Receipt Date: 20080710
  Transmission Date: 20090109
  Serious: Yes (Hospitalization)
  Sender: FDA-Public Use
  Company Number: 235864J08USA

PATIENT
  Age: 55 Year
  Sex: Male
  Weight: 115.6672 kg

DRUGS (6)
  1. REBIF [Suspect]
     Indication: MULTIPLE SCLEROSIS
     Dosage: 44 MCG, 3 IN 1 WEEKS, SUBCUTANEOUS
     Route: 058
     Dates: start: 20040804
  2. TYLENOL (COTYLENOL) [Concomitant]
  3. TRICOR [Concomitant]
  4. ACCUPRIL [Concomitant]
  5. LANTUS [Concomitant]
  6. APIDRA  (ALL OTHER THERAPEUTIC PRODUCTS) [Concomitant]

REACTIONS (1)
  - CELLULITIS [None]
